FAERS Safety Report 5422362-9 (Version None)
Quarter: 2007Q3

REPORT INFORMATION
  Report Type: 
  Country: None (occurrence: None)
  Receive Date: 20070820
  Receipt Date: 20070809
  Transmission Date: 20080115
  Serious: Yes (Hospitalization)
  Sender: FDA-Public Use
  Company Number: 070809-0000755

PATIENT
  Age: 33 Year
  Sex: Female

DRUGS (4)
  1. DACTINOMYCIN [Suspect]
     Indication: EWING'S SARCOMA
     Dosage: 0.75 MG/M**2; QD;
     Dates: start: 20021201, end: 20030201
  2. IFOSFAMIDE [Suspect]
     Indication: EWING'S SARCOMA
     Dates: start: 20021201, end: 20021201
  3. VINCRISTINE SULFATE [Suspect]
     Indication: EWING'S SARCOMA
     Dosage: 1 MG/M**2;
     Dates: start: 20021201, end: 20030201
  4. CYCLOPHOSPHAMIDE [Concomitant]

REACTIONS (8)
  - BLOOD ALKALINE PHOSPHATASE INCREASED [None]
  - BLOOD CREATININE INCREASED [None]
  - FEBRILE NEUTROPENIA [None]
  - GRAFT COMPLICATION [None]
  - HYPOKALAEMIA [None]
  - METASTASES TO BONE [None]
  - PROCEDURAL PAIN [None]
  - STRESS FRACTURE [None]
